FAERS Safety Report 17413700 (Version 1)
Quarter: 2020Q1

REPORT INFORMATION
  Report Type: Spontaneous
  Country: US (occurrence: US)
  Receive Date: 20200213
  Receipt Date: 20200213
  Transmission Date: 20200409
  Serious: No
  Sender: FDA-Public Use
  Company Number: US-PFIZER INC-2012175487

PATIENT
  Age: 69 Year
  Sex: Female

DRUGS (25)
  1. DILANTIN [Suspect]
     Active Substance: PHENYTOIN
     Dosage: 30 MG, 1X/DAY (QD)
  2. LITHIUM CARBONATE. [Concomitant]
     Active Substance: LITHIUM CARBONATE
     Dosage: 300 MG, 2X/DAY
  3. DILANTIN [Suspect]
     Active Substance: PHENYTOIN
     Dosage: 100 MG, DAILY
  4. DILANTIN [Suspect]
     Active Substance: PHENYTOIN
     Dosage: 100 MG, 1X/DAY,(EVERY MORNING)
     Route: 048
     Dates: start: 20190702
  5. ARTIFICIAL TEARS [HYPROMELLOSE] [Concomitant]
     Dosage: UNK (1 DROP INTO BOTH EYES AS NEEDED)
  6. ATIVAN [Concomitant]
     Active Substance: LORAZEPAM
     Indication: SLEEP DISORDER
  7. NEOMYCIN AND POLYMYXIN B SULF + DEXAMETH [Concomitant]
     Active Substance: DEXAMETHASONE\NEOMYCIN SULFATE\POLYMYXIN B SULFATE
     Dosage: UNK, 1X/DAY (DEXAMETHASONE: 0.1, NEOMYCIN SULFATE: 3.5, POLYMYXIN B SULFATE: 10,000; 1-2 DROP EYELID
  8. LEVOTHROID [Concomitant]
     Active Substance: LEVOTHYROXINE SODIUM
     Dosage: 100 UG, DAILY
     Route: 048
  9. ATIVAN [Concomitant]
     Active Substance: LORAZEPAM
     Indication: ANXIETY
     Dosage: UNK UNK, AS NEEDED (0.5 MG BY MOUTH, TAKE 1-2 BY MOUTH THREE TIMES A DAY AS NEEDED)
     Route: 048
  10. DILANTIN [Suspect]
     Active Substance: PHENYTOIN
     Dosage: 200 MG, 1X/DAY,(DAILY AT BEDTIME)
     Route: 048
     Dates: start: 20190702
  11. VITAMIN E [Concomitant]
     Active Substance: .ALPHA.-TOCOPHEROL
     Dosage: 400 IU, DAILY
     Route: 048
  12. BUSPAR [Concomitant]
     Active Substance: BUSPIRONE HYDROCHLORIDE
     Dosage: 15 MG, 2X/DAY
     Route: 048
  13. ESTRACE [Concomitant]
     Active Substance: ESTRADIOL
     Dosage: 2 G, DAILY
     Route: 067
  14. LITHOBID [Concomitant]
     Active Substance: LITHIUM CARBONATE
     Dosage: 300 MG, 2X/DAY
     Route: 048
  15. CALCIUM MAGNESIUM + VITAMIN D3 [Concomitant]
     Dosage: 2 DF, 2X/DAY
     Route: 048
  16. DILANTIN [Suspect]
     Active Substance: PHENYTOIN
     Dosage: 200 MG, 2X/DAY (100 MG; 2 CAPS BID)
     Route: 048
  17. SYNTHROID [Concomitant]
     Active Substance: LEVOTHYROXINE SODIUM
     Dosage: 100 UG, DAILY
     Route: 048
  18. ZYRTEC [Concomitant]
     Active Substance: CETIRIZINE HYDROCHLORIDE
     Dosage: 10 MG, DAILY (IN THE EVENING)
     Route: 048
  19. LORAZEPAM. [Concomitant]
     Active Substance: LORAZEPAM
     Indication: ANXIETY
     Dosage: 0.5 MG, 2X/DAY
  20. BUSPIRONE HCL [Concomitant]
     Active Substance: BUSPIRONE HYDROCHLORIDE
     Indication: ANXIETY
     Dosage: 5 MG, 3X/DAY
  21. CLARITIN [Concomitant]
     Active Substance: LORATADINE
     Dosage: 10 MG, 1X/DAY
     Route: 048
  22. TOPAMAX [Concomitant]
     Active Substance: TOPIRAMATE
     Dosage: 100 MG, DAILY (AT BED TIME)
     Route: 048
  23. MIRALAX [Concomitant]
     Active Substance: POLYETHYLENE GLYCOL 3350
     Dosage: UNK (TAKE IN AM)
  24. ABILIFY [Concomitant]
     Active Substance: ARIPIPRAZOLE
     Dosage: 10 MG, DAILY (1 IN AM)
     Route: 048
  25. SENOKOT-S [Concomitant]
     Active Substance: DOCUSATE SODIUM\SENNOSIDES
     Dosage: UNK 2X/DAY (DOCUSATE SODIUM: 50MG, SENNA ALEXANDRINA: 8.6MG; 1IN AM AND Q1 IN PM, 2 IN 9AM, 2 AT 9PM
     Route: 048

REACTIONS (3)
  - Product dispensing error [Unknown]
  - Product prescribing error [Unknown]
  - Drug level increased [Unknown]

NARRATIVE: CASE EVENT DATE: 20190702
